FAERS Safety Report 14492339 (Version 1)
Quarter: 2018Q1

REPORT INFORMATION
  Report Type: Report from Study
  Country: US (occurrence: US)
  Receive Date: 20180206
  Receipt Date: 20180206
  Transmission Date: 20180509
  Serious: No
  Sender: FDA-Public Use
  Company Number: US-ALEXION PHARMACEUTICALS INC.-A201800522

PATIENT
  Age: 22 Year
  Sex: Male
  Weight: 59.2 kg

DRUGS (7)
  1. PENTAM [Concomitant]
     Active Substance: PENTAMIDINE ISETHIONATE
     Indication: PRODUCT USED FOR UNKNOWN INDICATION
     Dosage: 300 MG, UNK
     Route: 055
  2. SOLIRIS [Suspect]
     Active Substance: ECULIZUMAB
     Indication: PAROXYSMAL NOCTURNAL HAEMOGLOBINURIA
     Dosage: 600 MG, UNK
     Route: 065
     Dates: start: 20130821
  3. NORMAL SALINE [Concomitant]
     Active Substance: SODIUM CHLORIDE
     Indication: DEHYDRATION
     Dosage: 0.9 %, Q2W
     Route: 042
     Dates: start: 20171024, end: 20171227
  4. SOLIRIS [Suspect]
     Active Substance: ECULIZUMAB
     Dosage: 900 MG, Q2W
     Route: 042
  5. SOLIRIS [Suspect]
     Active Substance: ECULIZUMAB
     Dosage: UNK, UNKNOWN
     Route: 065
     Dates: start: 20140408
  6. PROVENTIL [Concomitant]
     Active Substance: ALBUTEROL
     Indication: WHEEZING
     Dosage: 2.5 MG, Q6H
     Route: 055
  7. VENTOLIN [Concomitant]
     Active Substance: ALBUTEROL SULFATE
     Indication: WHEEZING
     Dosage: 2.4 MG, Q6H
     Route: 055

REACTIONS (12)
  - Mean cell volume increased [Unknown]
  - Aplastic anaemia [Unknown]
  - Red cell distribution width increased [Unknown]
  - Monocyte count increased [Recovered/Resolved]
  - Blood glucose increased [Recovered/Resolved]
  - Protein total increased [Unknown]
  - Bone marrow disorder [Unknown]
  - Carbon dioxide increased [Recovered/Resolved]
  - Red blood cell count decreased [Unknown]
  - Intravascular haemolysis [Unknown]
  - Mean platelet volume decreased [Unknown]
  - Haemoglobin decreased [Unknown]

NARRATIVE: CASE EVENT DATE: 20171115
